FAERS Safety Report 8352076-7 (Version None)
Quarter: 2012Q2

REPORT INFORMATION
  Report Type: 
  Country: None (occurrence: None)
  Receive Date: 20120511
  Receipt Date: 20120504
  Transmission Date: 20120825
  Serious: Yes (Other)
  Sender: FDA-Public Use
  Company Number: US-TEVA-330040USA

PATIENT
  Sex: Male

DRUGS (1)
  1. LAMOTRIGINE [Suspect]
     Indication: BIPOLAR DISORDER
     Dates: start: 20090829

REACTIONS (6)
  - SUBCUTANEOUS ABSCESS [None]
  - FOLLICULITIS [None]
  - FURUNCLE [None]
  - RASH [None]
  - BODY TEMPERATURE INCREASED [None]
  - PAIN [None]
